FAERS Safety Report 22297322 (Version 1)
Quarter: 2023Q2

REPORT INFORMATION
  Report Type: Spontaneous
  Country: US (occurrence: None)
  Receive Date: 20230509
  Receipt Date: 20230509
  Transmission Date: 20230722
  Serious: No
  Sender: FDA-Public Use
  Company Number: 2023A100158

PATIENT
  Sex: Female

DRUGS (1)
  1. BREZTRI [Suspect]
     Active Substance: BUDESONIDE\FORMOTEROL\GLYCOPYRROLATE
     Indication: Infection
     Route: 055

REACTIONS (5)
  - Candida infection [Unknown]
  - Taste disorder [Unknown]
  - Oral mucosal roughening [Unknown]
  - Abscess oral [Unknown]
  - Product use issue [Unknown]
